FAERS Safety Report 7682368-6 (Version None)
Quarter: 2011Q3

REPORT INFORMATION
  Report Type: 
  Country: None (occurrence: None)
  Receive Date: 20110810
  Receipt Date: 20110727
  Transmission Date: 20111222
  Serious: Yes (Other)
  Sender: FDA-Public Use
  Company Number: 2011-2617

PATIENT
  Weight: 1.7 kg

DRUGS (1)
  1. LANREOTIDE AUTOGEL 120 MG (LANREOTIDE AUTOGEL) (LANREOTIDE) (LANREOTID [Suspect]
     Indication: PRODUCT USED FOR UNKNOWN INDICATION

REACTIONS (4)
  - TWIN PREGNANCY [None]
  - PREMATURE BABY [None]
  - MATERNAL DRUGS AFFECTING FOETUS [None]
  - FOETAL GROWTH RESTRICTION [None]
